FAERS Safety Report 6214965-9 (Version None)
Quarter: 2009Q2

REPORT INFORMATION
  Report Type: 
  Country: None (occurrence: None)
  Receive Date: 20090604
  Receipt Date: 20090601
  Transmission Date: 20091009
  Serious: Yes (Hospitalization, Other)
  Sender: FDA-Public Use
  Company Number: GB-ROXANE LABORATORIES, INC.-2009-RO-00539RO

PATIENT
  Age: 20 Year
  Sex: Female

DRUGS (6)
  1. CITALOPRAM HYDROBROMIDE [Suspect]
     Route: 048
  2. DIAZEPAM [Suspect]
  3. ALCOHOL [Suspect]
  4. DEXTROSE [Concomitant]
     Indication: HYPOGLYCAEMIA
  5. DEXTROSE [Concomitant]
     Route: 042
  6. DEXTROSE [Concomitant]

REACTIONS (5)
  - ABDOMINAL PAIN [None]
  - DRUG TOXICITY [None]
  - GRAND MAL CONVULSION [None]
  - HYPOGLYCAEMIA [None]
  - OVERDOSE [None]
